FAERS Safety Report 7804213-8 (Version None)
Quarter: 2011Q4

REPORT INFORMATION
  Report Type: 
  Country: None (occurrence: None)
  Receive Date: 20111010
  Receipt Date: 20110919
  Transmission Date: 20120403
  Serious: No
  Sender: FDA-Public Use
  Company Number: US-B.I. PHARMACEUTICALS,INC./RIDGEFIELD-2011-BP-22466BP

PATIENT
  Sex: Female

DRUGS (5)
  1. VIT D [Concomitant]
     Indication: SUPPLEMENTATION THERAPY
  2. PRADAXA [Suspect]
     Indication: ATRIAL FIBRILLATION
     Dosage: 300 MG
     Route: 048
     Dates: start: 20101119
  3. VIT Q10 [Concomitant]
     Indication: SUPPLEMENTATION THERAPY
  4. ARMATHYROID [Concomitant]
     Indication: HYPOTHYROIDISM
  5. BYSTOLIC [Concomitant]
     Indication: CARDIAC DISORDER
     Route: 048

REACTIONS (5)
  - NIGHTMARE [None]
  - URINE OUTPUT INCREASED [None]
  - INSOMNIA [None]
  - HEADACHE [None]
  - PULMONARY OEDEMA [None]
